FAERS Safety Report 25090750 (Version 1)
Quarter: 2025Q1

REPORT INFORMATION
  Report Type: Spontaneous
  Country: US (occurrence: US)
  Receive Date: 20250318
  Receipt Date: 20250318
  Transmission Date: 20250409
  Serious: No
  Sender: ELI LILLY AND COMPANY
  Company Number: US-ELI_LILLY_AND_COMPANY-US202503009432

PATIENT
  Age: 85 Year
  Sex: Male
  Weight: 73 kg

DRUGS (1)
  1. HUMALOG [Suspect]
     Active Substance: INSULIN LISPRO
     Indication: Blood glucose increased
     Route: 065

REACTIONS (4)
  - Pollakiuria [Unknown]
  - Thirst [Unknown]
  - Confusional state [Unknown]
  - Vomiting [Unknown]
